FAERS Safety Report 23336568 (Version 2)
Quarter: 2024Q1

REPORT INFORMATION
  Report Type: Report from Study
  Country: US (occurrence: US)
  Receive Date: 20231226
  Receipt Date: 20240123
  Transmission Date: 20240409
  Serious: Yes (Other)
  Sender: FDA-Public Use
  Company Number: US-ABBVIE-5552629

PATIENT
  Sex: Female

DRUGS (1)
  1. SKYRIZI [Suspect]
     Active Substance: RISANKIZUMAB-RZAA
     Indication: Crohn^s disease
     Route: 058
     Dates: start: 20230413

REACTIONS (8)
  - Hypoacusis [Recovering/Resolving]
  - Anxiety [Recovering/Resolving]
  - Hypophagia [Unknown]
  - Emotional distress [Unknown]
  - Crohn^s disease [Unknown]
  - Gastrointestinal disorder [Unknown]
  - Mobility decreased [Unknown]
  - Gastrointestinal sounds abnormal [Unknown]

NARRATIVE: CASE EVENT DATE: 20230101
